FAERS Safety Report 15587879 (Version 3)
Quarter: 2019Q2

REPORT INFORMATION
  Report Type: Report from Study
  Country: US (occurrence: US)
  Receive Date: 20181105
  Receipt Date: 20190401
  Transmission Date: 20190711
  Serious: Yes (Other)
  Sender: FDA-Public Use
  Company Number: US-SA-2018SA303459

PATIENT
  Age: 68 Year
  Sex: Female

DRUGS (5)
  1. INSULIN GLARGINE [Suspect]
     Active Substance: INSULIN GLARGINE
     Dosage: 40 U, HS
     Route: 058
     Dates: start: 20181027
  2. INSULIN GLARGINE [Suspect]
     Active Substance: INSULIN GLARGINE
     Dosage: 45 U, HS
     Route: 058
  3. INSULIN GLARGINE [Suspect]
     Active Substance: INSULIN GLARGINE
     Dosage: 50 U, HS
     Route: 058
  4. NOVOLIN [Concomitant]
     Active Substance: INSULIN HUMAN
  5. INSULIN GLARGINE [Suspect]
     Active Substance: INSULIN GLARGINE
     Dosage: 55 U, HS
     Route: 058

REACTIONS (3)
  - Hypoaesthesia oral [Recovered/Resolved]
  - Heart rate increased [Recovered/Resolved]
  - Blood glucose decreased [Recovered/Resolved]
